FAERS Safety Report 9862942 (Version 1)
Quarter: 2014Q1

REPORT INFORMATION
  Report Type: Spontaneous
  Country: US (occurrence: US)
  Receive Date: 20140203
  Receipt Date: 20140203
  Transmission Date: 20141002
  Serious: Yes (Death)
  Sender: FDA-Public Use
  Company Number: CHPA2014US001793

PATIENT
  Age: 53 Year
  Sex: Female

DRUGS (11)
  1. ACETAMINOPHEN (PARACETAMOL) [Suspect]
     Route: 048
  2. DIAZEPAM [Suspect]
     Route: 048
  3. BUPROPION [Suspect]
     Route: 048
  4. GABAPENTIN [Suspect]
     Route: 048
  5. DULOXETINE [Suspect]
     Route: 048
  6. LISINOPRIL [Suspect]
     Route: 048
  7. METFORMIN [Suspect]
     Route: 048
  8. OXYBUTYNIN [Suspect]
     Route: 048
  9. MIRTAZAPINE [Suspect]
     Route: 048
  10. LOVASTATIN [Suspect]
     Route: 048
  11. VALPROIC ACID [Suspect]
     Route: 048

REACTIONS (1)
  - Completed suicide [Fatal]
